FAERS Safety Report 16304275 (Version 1)
Quarter: 2019Q2

REPORT INFORMATION
  Report Type: Spontaneous
  Country: US (occurrence: US)
  Receive Date: 20190513
  Receipt Date: 20190513
  Transmission Date: 20190711
  Serious: Yes (Life-Threatening)
  Sender: FDA-Public Use
  Company Number: US-BAYER-2019-091045

PATIENT
  Age: 87 Year
  Sex: Male
  Weight: 64 kg

DRUGS (2)
  1. MIRALAX [Suspect]
     Active Substance: POLYETHYLENE GLYCOL 3350
     Dosage: UNK
  2. BAYER LOW DOSE [Suspect]
     Active Substance: ASPIRIN
     Dosage: UNK
     Route: 048

REACTIONS (3)
  - Haemorrhage urinary tract [Unknown]
  - Infrequent bowel movements [Unknown]
  - Abnormal faeces [Unknown]
